FAERS Safety Report 25791190 (Version 1)
Quarter: 2025Q3

REPORT INFORMATION
  Report Type: Spontaneous
  Country: US (occurrence: US)
  Receive Date: 20250911
  Receipt Date: 20250911
  Transmission Date: 20251021
  Serious: Yes (Life-Threatening, Hospitalization)
  Sender: MYLAN
  Company Number: US-MYLANLABS-2025M1076099

PATIENT
  Age: 67 Year
  Sex: Male

DRUGS (8)
  1. EPINEPHRINE [Suspect]
     Active Substance: EPINEPHRINE
     Indication: Arterial haemorrhage
  2. EPINEPHRINE [Suspect]
     Active Substance: EPINEPHRINE
     Route: 065
  3. EPINEPHRINE [Suspect]
     Active Substance: EPINEPHRINE
     Route: 065
  4. EPINEPHRINE [Suspect]
     Active Substance: EPINEPHRINE
  5. BOTULINUM TOXIN NOS [Concomitant]
     Active Substance: BOTULINUM TOXIN NOS
     Indication: Product used for unknown indication
  6. BOTULINUM TOXIN NOS [Concomitant]
     Active Substance: BOTULINUM TOXIN NOS
     Route: 065
  7. BOTULINUM TOXIN NOS [Concomitant]
     Active Substance: BOTULINUM TOXIN NOS
     Route: 065
  8. BOTULINUM TOXIN NOS [Concomitant]
     Active Substance: BOTULINUM TOXIN NOS

REACTIONS (1)
  - Drug ineffective [Unknown]
